FAERS Safety Report 4652993-5 (Version None)
Quarter: 2005Q2

REPORT INFORMATION
  Report Type: 
  Country: None (occurrence: None)
  Receive Date: 20050503
  Receipt Date: 20050419
  Transmission Date: 20051028
  Serious: Yes (Disabling)
  Sender: FDA-Public Use
  Company Number: 200503306

PATIENT
  Age: 21 Month

DRUGS (1)
  1. BOTOX [Suspect]

REACTIONS (6)
  - ALLODYNIA [None]
  - INJECTION SITE REACTION [None]
  - PAIN [None]
  - PARAESTHESIA [None]
  - PERIPHERAL NERVE INJURY [None]
  - PROCEDURAL COMPLICATION [None]
